APPROVED DRUG PRODUCT: POTASSIUM PHOSPHATES
Active Ingredient: POTASSIUM PHOSPHATE, DIBASIC; POTASSIUM PHOSPHATE, MONOBASIC
Strength: 11.8GM/50ML (236MG/ML);11.2GM/50ML (224MG/ML)
Dosage Form/Route: SOLUTION;INTRAVENOUS
Application: N212832 | Product #003 | TE Code: AP
Applicant: FRESENIUS KABI USA LLC
Approved: Nov 26, 2019 | RLD: Yes | RS: Yes | Type: RX